FAERS Safety Report 7214997-8 (Version None)
Quarter: 2011Q1

REPORT INFORMATION
  Report Type: 
  Country: None (occurrence: None)
  Receive Date: 20110107
  Receipt Date: 20100620
  Transmission Date: 20110831
  Serious: No
  Sender: FDA-Public Use
  Company Number: A0867985A

PATIENT
  Sex: Female

DRUGS (1)
  1. LOVAZA [Suspect]
     Route: 065
     Dates: start: 20100101

REACTIONS (4)
  - FATIGUE [None]
  - CONTUSION [None]
  - FEELING ABNORMAL [None]
  - ASTHENIA [None]
